FAERS Safety Report 7200527-3 (Version None)
Quarter: 2010Q4

REPORT INFORMATION
  Report Type: 
  Country: None (occurrence: None)
  Receive Date: 20101228
  Receipt Date: 20101221
  Transmission Date: 20110411
  Serious: Yes (Hospitalization)
  Sender: FDA-Public Use
  Company Number: IT-BAXTER-2010BH030796

PATIENT
  Age: 11 Year
  Sex: Male

DRUGS (2)
  1. CYCLOPHOSPHAMIDE [Suspect]
     Indication: BURKITT'S LYMPHOMA
     Route: 042
     Dates: start: 20100723, end: 20100727
  2. UROMITEXAN BAXTER [Suspect]
     Indication: BURKITT'S LYMPHOMA
     Route: 042
     Dates: start: 20100723, end: 20100727

REACTIONS (3)
  - ABDOMINAL PAIN UPPER [None]
  - MALAISE [None]
  - PAIN IN EXTREMITY [None]
